FAERS Safety Report 8116584-6 (Version None)
Quarter: 2012Q1

REPORT INFORMATION
  Report Type: 
  Country: None (occurrence: None)
  Receive Date: 20120206
  Receipt Date: 20120202
  Transmission Date: 20120608
  Serious: Yes (Hospitalization)
  Sender: FDA-Public Use
  Company Number: US-PFIZER INC-2012011085

PATIENT
  Sex: Male
  Weight: 117.91 kg

DRUGS (3)
  1. CHANTIX [Suspect]
     Indication: SMOKING CESSATION THERAPY
     Dosage: UNK
     Route: 048
     Dates: start: 20100101, end: 20100101
  2. CHANTIX [Suspect]
     Dosage: UNK
     Route: 048
     Dates: start: 20111225
  3. MOBIC [Concomitant]
     Indication: ARTHRITIS
     Dosage: 15 MG, DAILY

REACTIONS (5)
  - FLATULENCE [None]
  - DIVERTICULITIS [None]
  - VOMITING [None]
  - POLYP [None]
  - PAIN [None]
